FAERS Safety Report 9018920 (Version 1)
Quarter: 2013Q1

REPORT INFORMATION
  Report Type: Spontaneous
  Country: US (occurrence: US)
  Receive Date: 20130118
  Receipt Date: 20130118
  Transmission Date: 20140127
  Serious: No
  Sender: FDA-Public Use
  Company Number: US-B.I. PHARMACEUTICALS,INC./RIDGEFIELD-2013-BI-00405BP

PATIENT
  Age: 47 Year
  Sex: Female

DRUGS (2)
  1. SPIRIVA [Suspect]
     Indication: ASTHMA
     Dosage: 18 MCG
     Route: 055
  2. SPIRIVA [Suspect]
     Route: 048
     Dates: start: 20130106, end: 20130106

REACTIONS (2)
  - Dizziness [Recovered/Resolved]
  - Incorrect route of drug administration [Recovered/Resolved]
